FAERS Safety Report 4863690-5 (Version None)
Quarter: 2005Q4

REPORT INFORMATION
  Report Type: 
  Country: None (occurrence: None)
  Receive Date: 20051222
  Receipt Date: 20051012
  Transmission Date: 20060501
  Serious: No
  Sender: FDA-Public Use
  Company Number: US-GLAXOSMITHKLINE-A0578023A

PATIENT
  Age: 73 Year
  Sex: Female
  Weight: 101.8 kg

DRUGS (5)
  1. FLOVENT [Suspect]
     Indication: ASTHMA
     Dosage: 2PUFF AS REQUIRED
     Route: 055
     Dates: start: 20051009
  2. ATENOLOL [Concomitant]
     Dosage: 50MG PER DAY
     Route: 048
  3. LASIX [Concomitant]
     Dosage: 20MG PER DAY
     Route: 048
  4. VASOTEC [Concomitant]
     Dosage: 10MG PER DAY
     Route: 048
  5. ASPIRIN [Concomitant]
     Indication: PROPHYLAXIS
     Dosage: 81MG PER DAY
     Route: 048

REACTIONS (2)
  - PHARMACEUTICAL PRODUCT COMPLAINT [None]
  - WHEEZING [None]
